FAERS Safety Report 11200537 (Version 1)
Quarter: 2015Q2

REPORT INFORMATION
  Report Type: Spontaneous
  Country: JP (occurrence: JP)
  Receive Date: 20150618
  Receipt Date: 20150618
  Transmission Date: 20150821
  Serious: Yes (Hospitalization, Other)
  Sender: FDA-Public Use
  Company Number: PHJP2015JP009453

PATIENT
  Age: 70 Year
  Sex: Male

DRUGS (3)
  1. SUNITINIB MALATE [Suspect]
     Active Substance: SUNITINIB MALATE
     Dosage: UNK
     Route: 065
     Dates: end: 201310
  2. SUNITINIB MALATE [Suspect]
     Active Substance: SUNITINIB MALATE
     Indication: PERITONEAL HAEMATOMA
     Route: 065
  3. IMATINIB [Suspect]
     Active Substance: IMATINIB
     Indication: PERITONEAL HAEMATOMA
     Dosage: UNK
     Route: 048

REACTIONS (6)
  - Drug-induced liver injury [Unknown]
  - Bone marrow failure [Unknown]
  - Off label use [Unknown]
  - Subdural haematoma [Recovered/Resolved]
  - Headache [Unknown]
  - Platelet count decreased [Unknown]

NARRATIVE: CASE EVENT DATE: 2013
